FAERS Safety Report 5298714-7 (Version None)
Quarter: 2007Q1

REPORT INFORMATION
  Report Type: 
  Country: None (occurrence: None)
  Receive Date: 20070201
  Receipt Date: 20061027
  Transmission Date: 20070707
  Serious: No
  Sender: FDA-Public Use
  Company Number: 2006PV024097

PATIENT
  Age: 65 Year
  Sex: Male
  Weight: 134.2647 kg

DRUGS (7)
  1. BYETTA [Suspect]
     Indication: DIABETES MELLITUS NON-INSULIN-DEPENDENT
     Dosage: 5 MCG; BID; SC
     Route: 058
     Dates: start: 20060926
  2. FLU SHOT [Suspect]
     Dates: start: 20061026, end: 20061026
  3. PNEUMONIA SHOT [Suspect]
     Dates: start: 20061026, end: 20061026
  4. METFORMIN HCL [Concomitant]
  5. ACTOS [Concomitant]
  6. GLIMEPIRIDE [Concomitant]
  7. ADVAIR DISKUS 100/50 [Concomitant]

REACTIONS (4)
  - BLOOD GLUCOSE INCREASED [None]
  - INJECTION SITE HAEMORRHAGE [None]
  - OEDEMA PERIPHERAL [None]
  - WEIGHT DECREASED [None]
